FAERS Safety Report 13818606 (Version 1)
Quarter: 2017Q3

REPORT INFORMATION
  Report Type: Spontaneous
  Country: US (occurrence: US)
  Receive Date: 20170731
  Receipt Date: 20170731
  Transmission Date: 20171127
  Serious: No
  Sender: FDA-Public Use
  Company Number: US-TEIKOKU PHARMA USA-TPU2017-00288

PATIENT
  Age: 47 Year
  Sex: Female
  Weight: 88.53 kg

DRUGS (3)
  1. EPIDURAL [Concomitant]
     Indication: BACK PAIN
     Route: 008
  2. LIDOCAINE PATCH [Suspect]
     Active Substance: LIDOCAINE
     Indication: BACK PAIN
     Dosage: 1 TO 2 PATCHES APPLIED TO BACK FOR 12 HOURS ON 12 HOURS OFF
     Route: 061
  3. EPIDURAL [Concomitant]
     Indication: MUSCLE SPASMS

REACTIONS (1)
  - Muscle spasms [Recovered/Resolved]

NARRATIVE: CASE EVENT DATE: 20170414
